FAERS Safety Report 12868616 (Version 3)
Quarter: 2018Q1

REPORT INFORMATION
  Report Type: Report from Study
  Country: US (occurrence: US)
  Receive Date: 20161020
  Receipt Date: 20180105
  Transmission Date: 20180508
  Serious: No
  Sender: FDA-Public Use
  Company Number: US-AMGEN-USASL2016097714

PATIENT
  Age: 69 Year

DRUGS (1)
  1. REPATHA [Suspect]
     Active Substance: EVOLOCUMAB
     Indication: HYPERLIPIDAEMIA
     Dosage: 140 MG(TWICE PER MONTH), UNK
     Route: 065

REACTIONS (3)
  - Injection site pain [Unknown]
  - Injection site nodule [Recovered/Resolved]
  - Injection site bruising [Recovered/Resolved]
